FAERS Safety Report 5705253-5 (Version None)
Quarter: 2008Q2

REPORT INFORMATION
  Report Type: 
  Country: None (occurrence: None)
  Receive Date: 20080411
  Receipt Date: 20070514
  Transmission Date: 20081010
  Serious: Yes (Hospitalization)
  Sender: FDA-Public Use
  Company Number: 2005RR-01369

PATIENT
  Age: 66 Year
  Sex: Male

DRUGS (15)
  1. SIMVASTATIN [Suspect]
     Indication: DYSLIPIDAEMIA
     Dosage: 80 MG, QD,
  2. CYCLOSPORINE [Suspect]
     Indication: IMMUNOSUPPRESSION
     Dosage: 400 NG/ML, QD,; 600 NG/ML, QD,
  3. NIFEDIPINE [Concomitant]
  4. LEVOTHYROXINE SODIUM [Concomitant]
  5. GLYBURIDE [Concomitant]
  6. THALIDOMIDE [Concomitant]
  7. DEXAMETHASONE TAB [Concomitant]
  8. PAMIDRONATE (PAMIDRONATE) [Concomitant]
  9. CYCLOPHOSPHAMIDE [Concomitant]
  10. MELPHALAN (MELPHALAN) [Concomitant]
  11. MYCOPHENOLATE MOFETIL [Concomitant]
  12. GRANULOCYTE-COLONY STIMULATING FACTOR (GRANULOCYTE-COLONY STIMULATING [Concomitant]
  13. CD34+ CELLS (CD34+ CELLS) [Concomitant]
  14. TACROLIMUS [Concomitant]
  15. GEMFIBROZIL [Concomitant]

REACTIONS (2)
  - DRUG INTERACTION [None]
  - RHABDOMYOLYSIS [None]
